FAERS Safety Report 5750314-8 (Version None)
Quarter: 2008Q2

REPORT INFORMATION
  Report Type: 
  Country: None (occurrence: None)
  Receive Date: 20080521
  Receipt Date: 20080521
  Transmission Date: 20081010
  Serious: Yes (Life-Threatening, Hospitalization)
  Sender: FDA-Public Use
  Company Number: None

PATIENT
  Sex: Female
  Weight: 71.2147 kg

DRUGS (1)
  1. EVISTA [Suspect]
     Indication: OSTEOPOROSIS
     Dosage: 1.DAT PO
     Route: 048
     Dates: start: 20040911, end: 20060217

REACTIONS (7)
  - ANTIPHOSPHOLIPID ANTIBODIES POSITIVE [None]
  - CEREBROVASCULAR ACCIDENT [None]
  - COAGULOPATHY [None]
  - ISCHAEMIC STROKE [None]
  - PERIPHERAL ARTERIAL OCCLUSIVE DISEASE [None]
  - PULMONARY EMBOLISM [None]
  - VENOUS THROMBOSIS LIMB [None]
